FAERS Safety Report 11654766 (Version 1)
Quarter: 2015Q4

REPORT INFORMATION
  Report Type: Report from Study
  Country: JP (occurrence: JP)
  Receive Date: 20151023
  Receipt Date: 20151023
  Transmission Date: 20160304
  Serious: Yes (Death, Hospitalization, Other)
  Sender: FDA-Public Use
  Company Number: PHHY2013JP172731

PATIENT
  Age: 63 Year
  Sex: Female
  Weight: 42 kg

DRUGS (2)
  1. PAZOPANIB [Suspect]
     Active Substance: PAZOPANIB
     Dosage: 400 MG, QD
     Route: 048
     Dates: start: 20130515, end: 20130527
  2. PAZOPANIB [Suspect]
     Active Substance: PAZOPANIB
     Indication: LEIOMYOSARCOMA
     Dosage: 400 MG, QD
     Route: 048
     Dates: start: 20130314, end: 20130507

REACTIONS (5)
  - Epistaxis [Recovered/Resolved]
  - Anal haemorrhage [Recovered/Resolved]
  - Haemoptysis [Recovered/Resolved]
  - Pneumonia [Fatal]
  - Pneumothorax [Not Recovered/Not Resolved]

NARRATIVE: CASE EVENT DATE: 20130329
